FAERS Safety Report 14104044 (Version 9)
Quarter: 2025Q2

REPORT INFORMATION
  Report Type: Report from Study
  Country: CA (occurrence: CA)
  Receive Date: 20171018
  Receipt Date: 20250419
  Transmission Date: 20250717
  Serious: Yes (Hospitalization, Other)
  Sender: NOVARTIS
  Company Number: PHHY2016CA158111

PATIENT
  Age: 59 Year
  Sex: Male

DRUGS (8)
  1. COSENTYX [Suspect]
     Active Substance: SECUKINUMAB
     Indication: Psoriatic arthropathy
     Dosage: 300 MG, QMO
     Route: 058
     Dates: start: 20161114, end: 20170924
  2. COSENTYX [Suspect]
     Active Substance: SECUKINUMAB
     Indication: Psoriasis
     Dosage: 300 MG, QMO
     Route: 058
     Dates: start: 20170924, end: 201711
  3. COSENTYX [Suspect]
     Active Substance: SECUKINUMAB
     Dosage: 300 MG, QMO
     Route: 058
     Dates: start: 20201019
  4. VOLTAREN [Concomitant]
     Active Substance: DICLOFENAC SODIUM
     Indication: Psoriatic arthropathy
     Route: 048
  5. BISOPROLOL [Concomitant]
     Active Substance: BISOPROLOL
     Indication: Hypertension
     Dosage: 1 DOSAGE FORM, QD
     Route: 065
     Dates: end: 2017
  6. HUMIRA [Concomitant]
     Active Substance: ADALIMUMAB
     Indication: Product used for unknown indication
     Route: 058
  7. ENBREL [Concomitant]
     Active Substance: ETANERCEPT
     Indication: Product used for unknown indication
     Route: 058
  8. SIMPONI [Concomitant]
     Active Substance: GOLIMUMAB
     Indication: Product used for unknown indication
     Route: 065

REACTIONS (9)
  - Neoplasm malignant [Unknown]
  - Lip and/or oral cavity cancer [Unknown]
  - Psoriatic arthropathy [Unknown]
  - Joint swelling [Unknown]
  - Gait disturbance [Unknown]
  - Pain [Unknown]
  - General physical health deterioration [Unknown]
  - Skin disorder [Unknown]
  - Bone disorder [Unknown]

NARRATIVE: CASE EVENT DATE: 20230501
